FAERS Safety Report 13006431 (Version 1)
Quarter: 2016Q4

REPORT INFORMATION
  Report Type: Spontaneous
  Country: FR (occurrence: FR)
  Receive Date: 20161207
  Receipt Date: 20161207
  Transmission Date: 20170207
  Serious: Yes (Hospitalization)
  Sender: FDA-Public Use
  Company Number: FR-TEVA-716135ROM

PATIENT
  Age: 16 Year
  Sex: Female

DRUGS (14)
  1. ONDANSETRON ACCORD 2 MG/ML [Suspect]
     Active Substance: ONDANSETRON
     Route: 042
     Dates: start: 20161011, end: 20161011
  2. EMEND [Suspect]
     Active Substance: APREPITANT
     Indication: PROPHYLAXIS OF NAUSEA AND VOMITING
     Route: 048
     Dates: end: 20161018
  3. VINCRISTINE HOSPIRA 2 MG/2 ML [Suspect]
     Active Substance: VINCRISTINE
     Dates: start: 20161003, end: 20161003
  4. ETOPOSIDE MYLAN 20 MG/ML [Suspect]
     Active Substance: ETOPOSIDE
     Indication: HODGKIN^S DISEASE
     Dosage: 195 MILLIGRAM DAILY; 195 MILLIGRAM, FIRST COURSE OF CHEMOTHERAPY PROTOCOL OEPA
     Route: 041
     Dates: start: 20160926, end: 20160930
  5. VELBE 10 MG [Suspect]
     Active Substance: VINBLASTINE SULFATE
     Indication: HODGKIN^S DISEASE
     Route: 041
     Dates: start: 20161011, end: 20161011
  6. VELBE 10 MG [Suspect]
     Active Substance: VINBLASTINE SULFATE
     Dosage: FIRST DAY OF THE SECOND COURSE OF CHEMOTHERAPY PROTOCOL OEPA. HALF THE DOSE
     Dates: start: 20161031, end: 20161031
  7. CORTANCYL [Suspect]
     Active Substance: PREDNISONE
     Route: 048
     Dates: start: 20160926, end: 20161011
  8. DOXORUBICINE TEVA [Suspect]
     Active Substance: DOXORUBICIN
     Indication: HODGKIN^S DISEASE
     Dosage: 62 MILLIGRAM DAILY; 62 MILLIGRAM, FIRST DAY OF THE FIRST COURSE OF CHEMOTHERAPY PROTOCOL OEPA
     Route: 041
     Dates: start: 20160926, end: 20160926
  9. DOXORUBICINE TEVA [Suspect]
     Active Substance: DOXORUBICIN
     Dosage: FIFTEENTH DAY OF THE FIRST COURSE OF CHEMOTHERAPY PROTOCOL OEPA
     Route: 041
     Dates: start: 20161011, end: 20161011
  10. ONDANSETRON ACCORD 2 MG/ML [Suspect]
     Active Substance: ONDANSETRON
     Route: 042
     Dates: start: 20161003, end: 20161003
  11. RIVOTRIL [Concomitant]
     Active Substance: CLONAZEPAM
     Indication: NEURALGIA
     Dates: end: 20161031
  12. VINCRISTINE HOSPIRA 2 MG/2 ML [Suspect]
     Active Substance: VINCRISTINE
     Indication: HODGKIN^S DISEASE
     Dosage: 2 MILLIGRAM DAILY; 2 MILLIGRAM, FIRST DAY OF THE FIRST COURSE OF CHEMOTHERAPY PROTOCOL OEPA
     Route: 041
     Dates: start: 20160926, end: 20160926
  13. ONDANSETRON ACCORD 2 MG/ML [Suspect]
     Active Substance: ONDANSETRON
     Indication: PROPHYLAXIS OF NAUSEA AND VOMITING
     Route: 042
     Dates: start: 20160926, end: 20161001
  14. DOXORUBICINE TEVA [Suspect]
     Active Substance: DOXORUBICIN
     Dosage: FIRST DAY OF THE SECOND COURSE OF CHEMOTHERAPY PROTOCOL OEPA. NORMAL DOSE
     Route: 041
     Dates: start: 20161031, end: 20161031

REACTIONS (4)
  - Febrile bone marrow aplasia [Recovered/Resolved]
  - Neuralgia [Recovered/Resolved]
  - Bone marrow failure [Recovered/Resolved]
  - Ileus [Recovered/Resolved]

NARRATIVE: CASE EVENT DATE: 2016
